FAERS Safety Report 4351160-2 (Version None)
Quarter: 2004Q2

REPORT INFORMATION
  Report Type: 
  Country: None (occurrence: None)
  Receive Date: 20040428
  Receipt Date: 20040213
  Transmission Date: 20050107
  Serious: Yes (Other)
  Sender: FDA-Public Use
  Company Number: US-JNJFOC-20040203728

PATIENT
  Age: 51 Year
  Sex: Female

DRUGS (3)
  1. ULTRAM [Suspect]
     Indication: MIGRAINE
     Dosage: 50 MG, ORAL
     Route: 048
  2. PERCOCET [Suspect]
     Indication: MIGRAINE
  3. PREMARIN [Concomitant]

REACTIONS (1)
  - DRUG ABUSER [None]
